FAERS Safety Report 17705527 (Version 1)
Quarter: 2020Q2

REPORT INFORMATION
  Report Type: Spontaneous
  Country: CN (occurrence: CN)
  Receive Date: 20200424
  Receipt Date: 20200424
  Transmission Date: 20200714
  Serious: Yes (Hospitalization)
  Sender: FDA-Public Use
  Company Number: CN-PFIZER INC-2020160308

PATIENT
  Age: 31 Year
  Sex: Male
  Weight: 110 kg

DRUGS (7)
  1. DIFLUCAN [Suspect]
     Active Substance: FLUCONAZOLE
     Indication: CORONARY ARTERY DISEASE
     Dosage: 400 MG, 1X/DAY
     Route: 045
     Dates: start: 20200104, end: 20200105
  2. VANCOMYCIN HYDROCHLORIDE. [Suspect]
     Active Substance: VANCOMYCIN HYDROCHLORIDE
     Indication: AORTIC DISSECTION
  3. DIFLUCAN [Suspect]
     Active Substance: FLUCONAZOLE
     Indication: FUNGAL INFECTION
     Dosage: 800 MG, 1X/DAY
     Route: 045
     Dates: start: 20200103, end: 20200103
  4. DIFLUCAN [Suspect]
     Active Substance: FLUCONAZOLE
     Indication: AORTIC DISSECTION
  5. VANCOMYCIN HYDROCHLORIDE. [Suspect]
     Active Substance: VANCOMYCIN HYDROCHLORIDE
     Indication: FUNGAL INFECTION
     Dosage: 500000 IU, 2X/DAY
     Route: 041
     Dates: start: 20200103, end: 20200109
  6. SODIUM CHLORIDE. [Concomitant]
     Active Substance: SODIUM CHLORIDE
     Indication: VEHICLE SOLUTION USE
     Dosage: 100 ML, 1X/DAY
     Route: 041
     Dates: start: 20200103, end: 20200109
  7. VANCOMYCIN HYDROCHLORIDE. [Suspect]
     Active Substance: VANCOMYCIN HYDROCHLORIDE
     Indication: CORONARY ARTERY DISEASE

REACTIONS (4)
  - Rash [Recovered/Resolved]
  - Rash maculo-papular [Recovered/Resolved]
  - Product use issue [Unknown]
  - Off label use [Unknown]

NARRATIVE: CASE EVENT DATE: 20200103
